FAERS Safety Report 17814850 (Version 1)
Quarter: 2020Q2

REPORT INFORMATION
  Report Type: Spontaneous
  Country: SI (occurrence: SI)
  Receive Date: 20200522
  Receipt Date: 20200522
  Transmission Date: 20200714
  Serious: Yes (Life-Threatening, Hospitalization, Other)
  Sender: FDA-Public Use
  Company Number: SI-SA-2020SA131969

PATIENT
  Age: 76 Year
  Sex: Female

DRUGS (12)
  1. MAREVAN [Concomitant]
     Active Substance: WARFARIN SODIUM
  2. EUTHYROX [Concomitant]
     Active Substance: LEVOTHYROXINE SODIUM
  3. INSULIN ASPART;INSULIN ASPART PROTAMINE (CRYSTALLINE) [Concomitant]
  4. DILATREND [Concomitant]
     Active Substance: CARVEDILOL
  5. BERODUAL [Concomitant]
     Active Substance: FENOTEROL HYDROBROMIDE\IPRATROPIUM BROMIDE
  6. APROVEL [Suspect]
     Active Substance: IRBESARTAN
     Indication: PRODUCT USED FOR UNKNOWN INDICATION
     Dosage: 300 MG, QD
     Route: 048
     Dates: start: 20111212, end: 20121212
  7. SPIRONOLACTONE. [Suspect]
     Active Substance: SPIRONOLACTONE
     Indication: PRODUCT USED FOR UNKNOWN INDICATION
     Dosage: 25 MG, QD
     Route: 048
     Dates: start: 20111212, end: 20121212
  8. AMYZOL [AMITRIPTYLINE HYDROCHLORIDE] [Concomitant]
  9. ONBREZ BREEZHALER [Concomitant]
     Active Substance: INDACATEROL
  10. CONTROLOC [Concomitant]
     Active Substance: PANTOPRAZOLE SODIUM
  11. EDEMID [Concomitant]
     Active Substance: FUROSEMIDE
  12. KALCIJEV KARBONAT [Concomitant]

REACTIONS (4)
  - Blood creatinine increased [Recovered/Resolved]
  - Bradycardia [Recovered/Resolved]
  - Hyperkalaemia [Recovered/Resolved]
  - Blood urea increased [Recovered/Resolved]

NARRATIVE: CASE EVENT DATE: 20121212
